FAERS Safety Report 25881206 (Version 1)
Quarter: 2025Q4

REPORT INFORMATION
  Report Type: Spontaneous
  Country: US (occurrence: US)
  Receive Date: 20251004
  Receipt Date: 20251004
  Transmission Date: 20260118
  Serious: No
  Sender: ELI LILLY AND COMPANY
  Company Number: US-ELI_LILLY_AND_COMPANY-US202509022162

PATIENT
  Age: 69 Year

DRUGS (25)
  1. ZEPBOUND [Suspect]
     Active Substance: TIRZEPATIDE
     Indication: Weight control
     Dosage: 2.5 MG, UNKNOWN
     Route: 058
     Dates: start: 20250803
  2. ZEPBOUND [Suspect]
     Active Substance: TIRZEPATIDE
     Indication: Weight control
     Dosage: 2.5 MG, UNKNOWN
     Route: 058
     Dates: start: 20250803
  3. ZEPBOUND [Suspect]
     Active Substance: TIRZEPATIDE
     Indication: Weight control
     Dosage: 2.5 MG, UNKNOWN
     Route: 058
     Dates: start: 20250803
  4. ZEPBOUND [Suspect]
     Active Substance: TIRZEPATIDE
     Indication: Weight control
     Dosage: 2.5 MG, UNKNOWN
     Route: 058
     Dates: start: 20250803
  5. ZEPBOUND [Suspect]
     Active Substance: TIRZEPATIDE
     Indication: Sleep apnoea syndrome
  6. ZEPBOUND [Suspect]
     Active Substance: TIRZEPATIDE
     Indication: Sleep apnoea syndrome
  7. ZEPBOUND [Suspect]
     Active Substance: TIRZEPATIDE
     Indication: Sleep apnoea syndrome
  8. ZEPBOUND [Suspect]
     Active Substance: TIRZEPATIDE
     Indication: Sleep apnoea syndrome
  9. ZEPBOUND [Suspect]
     Active Substance: TIRZEPATIDE
     Indication: Glycosylated haemoglobin abnormal
  10. ZEPBOUND [Suspect]
     Active Substance: TIRZEPATIDE
     Indication: Glycosylated haemoglobin abnormal
  11. ZEPBOUND [Suspect]
     Active Substance: TIRZEPATIDE
     Indication: Glycosylated haemoglobin abnormal
  12. ZEPBOUND [Suspect]
     Active Substance: TIRZEPATIDE
     Indication: Glycosylated haemoglobin abnormal
  13. ZEPBOUND [Suspect]
     Active Substance: TIRZEPATIDE
     Indication: Weight control
     Dosage: 5 MG, UNKNOWN
     Route: 058
  14. ZEPBOUND [Suspect]
     Active Substance: TIRZEPATIDE
     Indication: Weight control
     Dosage: 5 MG, UNKNOWN
     Route: 058
  15. ZEPBOUND [Suspect]
     Active Substance: TIRZEPATIDE
     Indication: Weight control
     Dosage: 5 MG, UNKNOWN
     Route: 058
  16. ZEPBOUND [Suspect]
     Active Substance: TIRZEPATIDE
     Indication: Weight control
     Dosage: 5 MG, UNKNOWN
     Route: 058
  17. ZEPBOUND [Suspect]
     Active Substance: TIRZEPATIDE
     Indication: Sleep apnoea syndrome
     Dosage: 5 MG, UNKNOWN
     Route: 058
  18. ZEPBOUND [Suspect]
     Active Substance: TIRZEPATIDE
     Indication: Sleep apnoea syndrome
     Dosage: 5 MG, UNKNOWN
     Route: 058
  19. ZEPBOUND [Suspect]
     Active Substance: TIRZEPATIDE
     Indication: Sleep apnoea syndrome
     Dosage: 5 MG, UNKNOWN
     Route: 058
  20. ZEPBOUND [Suspect]
     Active Substance: TIRZEPATIDE
     Indication: Sleep apnoea syndrome
     Dosage: 5 MG, UNKNOWN
     Route: 058
  21. ZEPBOUND [Suspect]
     Active Substance: TIRZEPATIDE
     Indication: Glycosylated haemoglobin abnormal
  22. ZEPBOUND [Suspect]
     Active Substance: TIRZEPATIDE
     Indication: Glycosylated haemoglobin abnormal
  23. ZEPBOUND [Suspect]
     Active Substance: TIRZEPATIDE
     Indication: Glycosylated haemoglobin abnormal
  24. ZEPBOUND [Suspect]
     Active Substance: TIRZEPATIDE
     Indication: Glycosylated haemoglobin abnormal
  25. COSENTYX [Concomitant]
     Active Substance: SECUKINUMAB
     Indication: Psoriatic arthropathy

REACTIONS (3)
  - Incorrect dose administered [Unknown]
  - Nausea [Unknown]
  - Constipation [Unknown]

NARRATIVE: CASE EVENT DATE: 20250922
